FAERS Safety Report 16796682 (Version 2)
Quarter: 2019Q3

REPORT INFORMATION
  Report Type: Spontaneous
  Country: RU (occurrence: RU)
  Receive Date: 20190911
  Receipt Date: 20190920
  Transmission Date: 20191005
  Serious: Yes (Death, Life-Threatening, Hospitalization)
  Sender: FDA-Public Use
  Company Number: RU-ALLERGAN-1936943US

PATIENT
  Sex: Male

DRUGS (4)
  1. ZERBAXA [Suspect]
     Active Substance: CEFTOLOZANE SULFATE\TAZOBACTAM SODIUM
     Indication: PERITONITIS
     Dosage: UNK, UNKNOWN
  2. VANCOMYCIN [Suspect]
     Active Substance: VANCOMYCIN
     Indication: PERITONITIS
     Dosage: UNK, UNKNOWN
  3. CEFTAZIDIME;AVIBACTAM - BP [Suspect]
     Active Substance: AVIBACTAM SODIUM\CEFTAZIDIME
     Indication: PERITONITIS
     Dosage: UNK
  4. SIVEXTRO [Suspect]
     Active Substance: TEDIZOLID PHOSPHATE
     Indication: PERITONITIS
     Dosage: UNK

REACTIONS (7)
  - Hepatic failure [Unknown]
  - Renal haemorrhage [Unknown]
  - Drug ineffective [Unknown]
  - Disease recurrence [Unknown]
  - Organ failure [Fatal]
  - Renal failure [Unknown]
  - Hypoglycaemia [Unknown]
